FAERS Safety Report 15858452 (Version 1)
Quarter: 2018Q4

REPORT INFORMATION
  Report Type: Spontaneous
  Country: US (occurrence: US)
  Receive Date: 20181227
  Receipt Date: 20181227
  Transmission Date: 20190205
  Serious: No
  Sender: FDA-Public Use
  Company Number: None

PATIENT
  Age: 55 Year
  Sex: Female

DRUGS (1)
  1. TALTZ [Suspect]
     Active Substance: IXEKIZUMAB
     Dosage: ?          OTHER FREQUENCY:OTHER;?
     Route: 058
     Dates: start: 201810

REACTIONS (6)
  - Rash [None]
  - Memory impairment [None]
  - Pain in extremity [None]
  - Blister [None]
  - Nasopharyngitis [None]
  - Product dose omission [None]

NARRATIVE: CASE EVENT DATE: 20181220
